FAERS Safety Report 6156689-2 (Version None)
Quarter: 2009Q2

REPORT INFORMATION
  Report Type: 
  Country: None (occurrence: None)
  Receive Date: 20090413
  Receipt Date: 20090413
  Transmission Date: 20091009
  Serious: No
  Sender: FDA-Public Use
  Company Number: None

PATIENT
  Sex: Female
  Weight: 99.09 kg

DRUGS (5)
  1. AVELOX [Suspect]
     Dosage: 400MG TABLET 400MG QD ORAL
     Route: 048
     Dates: start: 20090406, end: 20090410
  2. IBUPROFEN [Concomitant]
  3. NAPROXEN CONTROLLED RELEASE [Concomitant]
  4. PROVENTIL INHALER (ALBUTEROL INHALER) [Concomitant]
  5. ROBITUSSIN AC (GUIFENESIN AC) [Concomitant]

REACTIONS (1)
  - URTICARIA [None]
